FAERS Safety Report 25433481 (Version 1)
Quarter: 2025Q2

REPORT INFORMATION
  Report Type: Spontaneous
  Country: JP (occurrence: JP)
  Receive Date: 20250613
  Receipt Date: 20250613
  Transmission Date: 20250717
  Serious: Yes (Other)
  Sender: Phathom Pharmaceuticals
  Company Number: JP-PHATHOM PHARMACEUTICALS INC.-2025PHT01412

PATIENT

DRUGS (1)
  1. VONOPRAZAN FUMARATE [Suspect]
     Active Substance: VONOPRAZAN FUMARATE
     Indication: Gastric ulcer
     Dosage: 20 MG, 1X/DAY
     Route: 065

REACTIONS (1)
  - Haematemesis [Unknown]
